FAERS Safety Report 8512862-7 (Version None)
Quarter: 2012Q3

REPORT INFORMATION
  Report Type: 
  Country: None (occurrence: None)
  Receive Date: 20120705
  Receipt Date: 20120619
  Transmission Date: 20120928
  Serious: Yes (Other)
  Sender: FDA-Public Use
  Company Number: FK201201760

PATIENT
  Age: 72 Year
  Sex: Female

DRUGS (4)
  1. VINCRISTINE [Suspect]
     Indication: LYMPHOMA
     Dosage: 1.4 MG/M2
  2. PROCARBAZINE HYDROCHLORIDE [Suspect]
     Indication: LYMPHOMA
     Dosage: 100 MG/M2, 1 IN 1 D
  3. METHOTREXATE [Suspect]
     Indication: LYMPHOMA
     Dosage: 3500 MG/M2, 400 UG, INTRAVITREOUS, FOR 2 MONTHS
  4. RITUXIMAB (RITUXIMAB) (RITUXIMAB) [Suspect]
     Indication: LYMPHOMA
     Dosage: 375 MG/M2

REACTIONS (2)
  - NEUTROPENIA [None]
  - KERATITIS [None]
